FAERS Safety Report 7913817-3 (Version None)
Quarter: 2011Q4

REPORT INFORMATION
  Report Type: 
  Country: None (occurrence: None)
  Receive Date: 20111110
  Receipt Date: 20111019
  Transmission Date: 20120403
  Serious: No
  Sender: FDA-Public Use
  Company Number: TPA2011A06868

PATIENT
  Age: 14 Year
  Sex: Female
  Weight: 45.3597 kg

DRUGS (1)
  1. LANSOPRAZOLE [Suspect]
     Indication: GASTROOESOPHAGEAL REFLUX DISEASE
     Dosage: 1 IN 1 D, ORAL
     Route: 048
     Dates: start: 20110501, end: 20111018

REACTIONS (3)
  - DIZZINESS [None]
  - HEADACHE [None]
  - VISION BLURRED [None]
